FAERS Safety Report 13363862 (Version 2)
Quarter: 2017Q2

REPORT INFORMATION
  Report Type: Spontaneous
  Country: BR (occurrence: BR)
  Receive Date: 20170323
  Receipt Date: 20170411
  Transmission Date: 20170830
  Serious: Yes (Hospitalization, Other)
  Sender: FDA-Public Use
  Company Number: BR-ABBVIE-17P-020-1918439-00

PATIENT
  Age: 7 Month
  Sex: Male
  Weight: 7.2 kg

DRUGS (7)
  1. BROMOPRIDE [Concomitant]
     Active Substance: BROMOPRIDE
     Indication: GASTROOESOPHAGEAL REFLUX DISEASE
     Dates: start: 201510, end: 201612
  2. RANITIDINE. [Concomitant]
     Active Substance: RANITIDINE
     Indication: GASTROOESOPHAGEAL REFLUX DISEASE
     Dosage: TABLET DILUTED IN 6 ML OF WATER, BUT ONLY 2ML ADMINISTERD
     Dates: start: 201612
  3. DEPAKOTE [Suspect]
     Active Substance: DIVALPROEX SODIUM
     Indication: EPILEPSY
     Dosage: START DATE DEC 2016: DAILY DOSE: 2 TABLETS DILUTED IN 10 ML WATER
     Route: 065
  4. DEPAKENE [Suspect]
     Active Substance: VALPROIC ACID
     Indication: EPILEPSY
     Dosage: REPORTER DOES NOT REMEMBER, IT WAS ACCORDING TO PATIENT^S WEIGHT
     Route: 048
     Dates: start: 201606, end: 201612
  5. TOPIRAMATE GENERIC HEALTH [Concomitant]
     Indication: EPILEPSY
     Dosage: DAILY DOSE: 100 MG, UNIT DOSE: 1 TAB DILUTED IN 5 ML WATER
     Dates: start: 201605
  6. SABRIL [Concomitant]
     Active Substance: VIGABATRIN
     Indication: EPILEPSY
     Dosage: DAILY DOSE: 500 MG DILUTED IN 5 ML WATER
     Dates: start: 201604
  7. DOMPERIDONE [Concomitant]
     Active Substance: DOMPERIDONE
     Indication: GASTROOESOPHAGEAL REFLUX DISEASE
     Dosage: 1 TABLET DISSOLVED IN 10 ML OF WATER EVERY 8 HOURS
     Dates: start: 201612

REACTIONS (6)
  - Product use in unapproved indication [Unknown]
  - Aspiration bronchial [Recovered/Resolved]
  - Pneumonia [Recovered/Resolved]
  - Haemorrhage intracranial [Recovered/Resolved]
  - Epilepsy [Recovered/Resolved]
  - Drug administration error [Unknown]

NARRATIVE: CASE EVENT DATE: 201606
